FAERS Safety Report 20733838 (Version 3)
Quarter: 2022Q3

REPORT INFORMATION
  Report Type: Spontaneous
  Country: FR (occurrence: FR)
  Receive Date: 20220421
  Receipt Date: 20220818
  Transmission Date: 20221026
  Serious: Yes (Other)
  Sender: FDA-Public Use
  Company Number: FR-GILEAD-2022-0570792

PATIENT
  Sex: Female
  Weight: 55 kg

DRUGS (14)
  1. METFORMIN [Suspect]
     Active Substance: METFORMIN HYDROCHLORIDE
     Indication: Diabetes mellitus
     Route: 065
  2. SACITUZUMAB GOVITECAN [Suspect]
     Active Substance: SACITUZUMAB GOVITECAN
     Indication: Triple negative breast cancer
     Dosage: 10 MG/KG, C2D1 C2D8
     Route: 042
     Dates: start: 20211214, end: 20211221
  3. SACITUZUMAB GOVITECAN [Suspect]
     Active Substance: SACITUZUMAB GOVITECAN
     Dosage: 10 MG/KG,  C4D1 AND C4D8
     Route: 042
     Dates: start: 20220216, end: 20220223
  4. SACITUZUMAB GOVITECAN [Suspect]
     Active Substance: SACITUZUMAB GOVITECAN
     Dosage: 10 MG/KG,  C6D1 AND C6D8
     Route: 042
     Dates: start: 20220308, end: 20220315
  5. SACITUZUMAB GOVITECAN [Suspect]
     Active Substance: SACITUZUMAB GOVITECAN
     Dosage: 10 MG/KG, C3D1 C3D8
     Route: 042
     Dates: start: 20220104, end: 20220111
  6. SACITUZUMAB GOVITECAN [Suspect]
     Active Substance: SACITUZUMAB GOVITECAN
     Dosage: 10 MG/KG, C1D1, C1D8
     Route: 042
     Dates: start: 20211123, end: 20211130
  7. SACITUZUMAB GOVITECAN [Suspect]
     Active Substance: SACITUZUMAB GOVITECAN
     Dosage: 8 MG/KG,  C4D1
     Route: 042
     Dates: start: 20220125, end: 20220201
  8. SACITUZUMAB GOVITECAN [Suspect]
     Active Substance: SACITUZUMAB GOVITECAN
     Dosage: 10 MG/KG, C7D1,D8
     Route: 042
     Dates: start: 20220405, end: 20220412
  9. SACITUZUMAB GOVITECAN [Suspect]
     Active Substance: SACITUZUMAB GOVITECAN
     Dosage: 10 MG/KG C8D1,D8
     Route: 042
     Dates: start: 20220426
  10. SACITUZUMAB GOVITECAN [Suspect]
     Active Substance: SACITUZUMAB GOVITECAN
     Dosage: 10 MG/KG, D10D1 AND C10D8
     Route: 042
     Dates: start: 20220614, end: 20220621
  11. SACITUZUMAB GOVITECAN [Suspect]
     Active Substance: SACITUZUMAB GOVITECAN
     Dosage: 10 MG/KG, C11D1 AND C11D8
     Route: 042
     Dates: start: 20220705, end: 20220712
  12. SACITUZUMAB GOVITECAN [Suspect]
     Active Substance: SACITUZUMAB GOVITECAN
     Dosage: 10 MG/KG
     Route: 042
     Dates: start: 20220726, end: 20220802
  13. SACITUZUMAB GOVITECAN [Suspect]
     Active Substance: SACITUZUMAB GOVITECAN
     Dosage: 10 MG/KG, C9D1 AND C9D8
     Route: 042
     Dates: start: 20220524, end: 20220531
  14. OMEPRAZOLE [Concomitant]
     Active Substance: OMEPRAZOLE
     Indication: Gastrooesophageal reflux disease
     Dosage: UNK
     Route: 065
     Dates: start: 20210630

REACTIONS (4)
  - COVID-19 [Recovered/Resolved]
  - Neutropenia [Recovered/Resolved]
  - Inappropriate schedule of product administration [Unknown]
  - Off label use [Unknown]

NARRATIVE: CASE EVENT DATE: 20220128
